FAERS Safety Report 7741260-9 (Version None)
Quarter: 2011Q3

REPORT INFORMATION
  Report Type: 
  Country: None (occurrence: None)
  Receive Date: 20110909
  Receipt Date: 20110831
  Transmission Date: 20111222
  Serious: Yes (Hospitalization)
  Sender: FDA-Public Use
  Company Number: US-US-EMD SERONO, INC.-7080735

PATIENT
  Sex: Female
  Weight: 54 kg

DRUGS (4)
  1. REBIF [Suspect]
     Indication: PRODUCT USED FOR UNKNOWN INDICATION
     Route: 058
     Dates: start: 20110425
  2. REBIF [Suspect]
     Route: 058
  3. PREDNISONE [Concomitant]
     Indication: ASTHMA
  4. PROVENTIL GENTLEHALER [Concomitant]
     Indication: ASTHMA

REACTIONS (7)
  - CONTUSION [None]
  - PHYSICAL ASSAULT [None]
  - FATIGUE [None]
  - MEMORY IMPAIRMENT [None]
  - HEAD INJURY [None]
  - INFLUENZA LIKE ILLNESS [None]
  - EXCORIATION [None]
